FAERS Safety Report 9456751 (Version 3)
Quarter: 2015Q1

REPORT INFORMATION
  Report Type: Spontaneous
  Country: US (occurrence: US)
  Receive Date: 20130813
  Receipt Date: 20150302
  Transmission Date: 20150721
  Serious: Yes (Hospitalization, Disabling, Other)
  Sender: FDA-Public Use
  Company Number: US-009507513-1202USA02294

PATIENT
  Sex: Female
  Weight: 68.27 kg

DRUGS (1)
  1. FOSAMAX [Suspect]
     Active Substance: ALENDRONATE SODIUM
     Indication: OSTEOPOROSIS PROPHYLAXIS
     Dosage: 70 MG, QW
     Route: 048
     Dates: start: 2000, end: 200908

REACTIONS (17)
  - Osteoporosis [Unknown]
  - Wrist fracture [Unknown]
  - Spinal osteoarthritis [Unknown]
  - Hypercholesterolaemia [Unknown]
  - Femur fracture [Recovering/Resolving]
  - Intramedullary rod insertion [Unknown]
  - Forearm fracture [Unknown]
  - Rheumatoid arthritis [Unknown]
  - Hypertension [Unknown]
  - Cardiomegaly [Unknown]
  - Diabetes mellitus [Unknown]
  - Fall [None]
  - Osteopenia [Unknown]
  - Liver function test abnormal [Unknown]
  - Body height decreased [Unknown]
  - Bursitis [Unknown]
  - Hepatic steatosis [Unknown]

NARRATIVE: CASE EVENT DATE: 2003
